FAERS Safety Report 23760597 (Version 1)
Quarter: 2024Q2

REPORT INFORMATION
  Report Type: Spontaneous
  Country: US (occurrence: US)
  Receive Date: 20240419
  Receipt Date: 20240419
  Transmission Date: 20240716
  Serious: Yes (Other)
  Sender: FDA-Public Use
  Company Number: US-INTERCEPT-PM2024000204

PATIENT
  Age: 72 Year
  Sex: Female
  Weight: 65.76 kg

DRUGS (27)
  1. OCALIVA [Suspect]
     Active Substance: OBETICHOLIC ACID
     Indication: Primary biliary cholangitis
     Dosage: 10 MILLIGRAM, QD
     Route: 048
     Dates: start: 20190326, end: 20240129
  2. ACTIGALL [Concomitant]
     Active Substance: URSODIOL
     Dosage: UNK UNK,
     Route: 048
  3. ACTIGALL [Concomitant]
     Active Substance: URSODIOL
     Dosage: 300 MILLIGRAM, BID
     Dates: start: 20240104
  4. ALBUTEROL [Concomitant]
     Active Substance: ALBUTEROL
     Indication: Wheezing
     Dosage: 2 PUFFS INTO THE LUNGS EVERY 6 HOURS AS NEEDED
     Dates: start: 20230918
  5. ALBUTEROL [Concomitant]
     Active Substance: ALBUTEROL
     Indication: Dyspnoea
  6. NORVASC [Concomitant]
     Active Substance: AMLODIPINE BESYLATE
     Dosage: 10 MILLIGRAM, QD, EVERY MORNING
     Route: 048
  7. NORVASC [Concomitant]
     Active Substance: AMLODIPINE BESYLATE
     Dosage: 10 MILLIGRAM, QD, EVERY MORNING
     Route: 048
     Dates: start: 20240102
  8. ELIQUIS [Concomitant]
     Active Substance: APIXABAN
     Dosage: 5 MILLIGRAM, BID, MORNING AND BEDTIME
     Route: 048
     Dates: start: 20231016
  9. ATORVASTATIN [Concomitant]
     Active Substance: ATORVASTATIN
     Dosage: 40 MILLIGRAM, QD
     Route: 048
     Dates: start: 20231016
  10. VITAMIN B12 [Concomitant]
     Active Substance: CYANOCOBALAMIN
     Dosage: 1000 MICROGRAM, QD
     Route: 060
     Dates: start: 20230525
  11. DEXTRAN 70 [Concomitant]
     Active Substance: DEXTRAN 70
     Dosage: 1 DROP INTO BOTH EYES EVERY 3 HRS AS NEEDED
  12. FLUTICASONE FUROATE\UMECLIDINIUM BROMIDE\VILANTEROL TRIFENATATE [Concomitant]
     Active Substance: FLUTICASONE FUROATE\UMECLIDINIUM BROMIDE\VILANTEROL TRIFENATATE
     Dosage: 1 PUFF INTO THE LUNGS IN THE MORNING
     Dates: start: 20231128
  13. LASIX [Concomitant]
     Active Substance: FUROSEMIDE
     Dosage: 20 MILLIGRAM, EVERY THIRD DAY AS NEEDED
     Route: 048
     Dates: start: 20230124
  14. HUMALOG [Concomitant]
     Active Substance: INSULIN LISPRO
     Dosage: 100 UNITED STATES PHARMACOPEIA UNIT, QD, IN THE MORNING
     Route: 003
     Dates: start: 20240122
  15. PROBIOTIC ACIDOPHILUS [LACTOBACILLUS ACIDOPHILUS] [Concomitant]
     Dosage: UNK, DAILY
     Route: 048
  16. LEVOTHYROXINE [Concomitant]
     Active Substance: LEVOTHYROXINE\LEVOTHYROXINE SODIUM
     Dosage: 112 MICROGRAM, QD, EVERY MORNING
     Route: 048
     Dates: start: 20240122
  17. THERAGRAN [ASCORBIC ACID;BIOTIN;CALCIUM PANTOTHENATE;CYANOCOBALAMIN;ER [Concomitant]
     Dosage: 1 TABLET BY MOUTH EVERY MORNING
     Route: 048
     Dates: start: 20230328
  18. NITROGLYCERIN [Concomitant]
     Active Substance: NITROGLYCERIN
     Indication: Chest pain
     Dosage: 0.4 MILLIGRAM, EVERY 5 MINS AS NEEDED
     Route: 060
     Dates: start: 20230328
  19. OFLOXACIN [Concomitant]
     Active Substance: OFLOXACIN
     Dosage: 0.3 PERCENT, 5 DROPS IN THE MORNING
  20. PATANOL [Concomitant]
     Active Substance: OLOPATADINE HYDROCHLORIDE
     Dosage: 0.1 PERCENT, 1 DROP MORNING AND 1 DROP BEDTIMEIN THE MORNING
  21. PANTOPRAZOLE [Concomitant]
     Active Substance: PANTOPRAZOLE
     Dosage: 40 MILLIGRAM, QD, BBF
     Route: 048
     Dates: start: 20231009
  22. PEG [PREGABALIN] [Concomitant]
     Dosage: 1 DROP INTO BOTH EYES FOR EVERY 6 HOURS AS NEEDED
  23. SACUBITRIL\VALSARTAN [Concomitant]
     Active Substance: SACUBITRIL\VALSARTAN
     Dosage: 1 TABLET MORNING AND 1 TABLET BED TIME
     Route: 048
     Dates: start: 20231115
  24. COSENTYX [Concomitant]
     Active Substance: SECUKINUMAB
     Dosage: UNK
     Dates: start: 20230101
  25. EFFEXOR [Concomitant]
     Active Substance: VENLAFAXINE HYDROCHLORIDE
     Dosage: 150 MILLIGRAM, QD, IN THE MORNING
     Route: 048
     Dates: start: 20231016
  26. NOVOLOG [Concomitant]
     Active Substance: INSULIN ASPART
     Dosage: 100 INTERNATIONAL UNIT, QD
     Dates: start: 20231016
  27. FIBERCON [Concomitant]
     Active Substance: CALCIUM POLYCARBOPHIL
     Dosage: 1 TO 2 TABLETS DAILY

REACTIONS (22)
  - Deafness [Not Recovered/Not Resolved]
  - Oesophageal stenosis [Unknown]
  - Pulmonary fibrosis [Unknown]
  - Skin lesion [Unknown]
  - Gastric mucosa erythema [Unknown]
  - Abdominal distension [Unknown]
  - Change of bowel habit [Recovered/Resolved]
  - Diarrhoea [Recovered/Resolved]
  - Splenic granuloma [Unknown]
  - Haemorrhoids [Unknown]
  - Diverticulum intestinal [Unknown]
  - Gastrooesophageal reflux disease [Unknown]
  - Spinal deformity [Unknown]
  - Colorectal adenoma [Unknown]
  - Hiatus hernia [Unknown]
  - Atelectasis [Unknown]
  - Oesophagitis [Unknown]
  - Aortic valve replacement [Recovered/Resolved]
  - Rash [Unknown]
  - Pruritus [Recovered/Resolved]
  - Abdominal pain [Recovered/Resolved]
  - Product prescribing error [Recovered/Resolved]

NARRATIVE: CASE EVENT DATE: 20190326
